FAERS Safety Report 17097072 (Version 1)
Quarter: 2019Q4

REPORT INFORMATION
  Report Type: Spontaneous
  Country: US (occurrence: US)
  Receive Date: 20191129
  Receipt Date: 20191129
  Transmission Date: 20200122
  Serious: No
  Sender: FDA-Public Use
  Company Number: None

PATIENT
  Age: 69 Year
  Sex: Female
  Weight: 74.7 kg

DRUGS (1)
  1. LEVOTHYROXINE 88MCG TAB SAN [Suspect]
     Active Substance: LEVOTHYROXINE SODIUM
     Indication: THYROID DISORDER
     Dosage: ?          OTHER STRENGTH:MCG;QUANTITY:1 TABLET(S);?
     Route: 048
     Dates: start: 20191023

REACTIONS (3)
  - Product complaint [None]
  - Throat irritation [None]
  - Product solubility abnormal [None]

NARRATIVE: CASE EVENT DATE: 20191121
